FAERS Safety Report 12384770 (Version 1)
Quarter: 2016Q2

REPORT INFORMATION
  Report Type: Spontaneous
  Country: US (occurrence: US)
  Receive Date: 20160519
  Receipt Date: 20160519
  Transmission Date: 20160815
  Serious: No
  Sender: FDA-Public Use
  Company Number: US-TEVA-560826USA

PATIENT
  Age: 67 Year
  Sex: Female
  Weight: 103.42 kg

DRUGS (4)
  1. LISINOPRIL. [Suspect]
     Active Substance: LISINOPRIL
     Route: 065
  2. TORASEMIDE [Suspect]
     Active Substance: TORSEMIDE
     Dosage: 20 MILLIGRAM DAILY; EVERY MORNING
     Route: 048
  3. TORASEMIDE [Suspect]
     Active Substance: TORSEMIDE
     Dosage: 20 MILLIGRAM DAILY; TAKE 1/2 TABLET IN MORNING AND 1/2 TABLET IN EVENING
     Route: 048
     Dates: start: 20130813
  4. TORASEMIDE [Suspect]
     Active Substance: TORSEMIDE
     Dosage: 10 MILLIGRAM DAILY; EVERY EVENING
     Route: 048

REACTIONS (2)
  - Dyspnoea [Unknown]
  - Drug hypersensitivity [Unknown]

NARRATIVE: CASE EVENT DATE: 20130813
